FAERS Safety Report 5302615-5 (Version None)
Quarter: 2007Q2

REPORT INFORMATION
  Report Type: 
  Country: None (occurrence: None)
  Receive Date: 20070419
  Receipt Date: 20070407
  Transmission Date: 20071010
  Serious: Yes (Other)
  Sender: FDA-Public Use
  Company Number: US-PFIZER INC-2007014395

PATIENT
  Sex: Female
  Weight: 50.8 kg

DRUGS (10)
  1. CHANTIX [Suspect]
     Indication: SMOKING CESSATION THERAPY
     Dates: start: 20070208, end: 20070305
  2. CHANTIX [Suspect]
     Indication: TOBACCO ABUSE
  3. EVISTA [Concomitant]
  4. XANAX [Concomitant]
  5. PAROXETINE [Concomitant]
     Indication: BIPOLAR DISORDER
  6. SKELAXIN [Concomitant]
  7. DEPAKOTE [Concomitant]
     Indication: BIPOLAR DISORDER
  8. VALIUM [Concomitant]
  9. MOBIC [Concomitant]
  10. BENADRYL [Concomitant]

REACTIONS (9)
  - DYSGEUSIA [None]
  - DYSPHAGIA [None]
  - GINGIVAL OEDEMA [None]
  - INSOMNIA [None]
  - MOUTH ULCERATION [None]
  - OEDEMA MOUTH [None]
  - ORAL PAIN [None]
  - SWOLLEN TONGUE [None]
  - WEIGHT INCREASED [None]
